FAERS Safety Report 6865827-5 (Version None)
Quarter: 2010Q3

REPORT INFORMATION
  Report Type: 
  Country: None (occurrence: None)
  Receive Date: 20100720
  Receipt Date: 20100713
  Transmission Date: 20110219
  Serious: Yes (Death)
  Sender: FDA-Public Use
  Company Number: 2010US002165

PATIENT
  Age: 6 Year
  Sex: Female

DRUGS (26)
  1. AMBISOME [Suspect]
     Indication: PNEUMONIA
     Dosage: 75 MG, UID/QD, IV DRIP, 100 MG, UID/QD, IV DRIP
     Route: 041
     Dates: start: 20100324, end: 20100406
  2. AMBISOME [Suspect]
     Indication: PNEUMONIA
     Dosage: 75 MG, UID/QD, IV DRIP, 100 MG, UID/QD, IV DRIP
     Route: 041
     Dates: start: 20100407, end: 20100411
  3. ZOSYN [Suspect]
     Indication: PNEUMONIA
     Dosage: 9 G, UID/QD, IV DRIP
     Route: 041
     Dates: start: 20100227
  4. HEPARIN SODIUM [Suspect]
     Indication: ANTICOAGULANT THERAPY
     Dosage: 10 IU, UID/QD, IV NOS
     Route: 042
     Dates: start: 20100324
  5. TARGOID (TEICOPLANIN) [Suspect]
     Indication: PNEUMONIA STAPHYLOCOCCAL
     Dosage: 150 MG, UID/QD, IV DRIP
     Route: 041
     Dates: start: 20100325
  6. ASPARA K (ASPARTATE POTASSIUM) [Suspect]
     Indication: HYPOKALAEMIA
     Dosage: 30 MEQ, UID/QD, IV NOS
     Route: 042
     Dates: start: 20100329
  7. NEO-MINOPHAGEN C (GLYCYRRHIZIC ACID, AMMONIUM SALT) [Suspect]
     Indication: LIVER DISORDER
     Dosage: 40 ML, UID/QD, IV DRIP
     Route: 041
     Dates: start: 20100331
  8. DORIBAX [Suspect]
     Indication: PNEUMONIA
     Dosage: 0.5 G, UID/QD, IV DRIP
     Route: 041
     Dates: start: 20100402
  9. MIDAZOLAM HCL [Suspect]
     Indication: CONVULSION
     Dosage: 80 MG, UID/QD, IV DRIP
     Route: 041
     Dates: start: 20100402
  10. ASPARTATE POTASSIUM (ASPARTATE POTASSIUM) [Concomitant]
  11. PHENOBARBITAL TAB [Concomitant]
  12. MYSTAN (CLOBAZAM) [Concomitant]
  13. DEPAKENE [Concomitant]
  14. MEILAX (ETHYL LOFLAZEPATE) [Concomitant]
  15. MUCODYNE (CARBOCISTEINE) [Concomitant]
  16. MUCOSOLVAN (AMBROXOL HYDROCHLORIDE) [Concomitant]
  17. ONON (PRANLUKAST) [Concomitant]
  18. SODIUM BROMIDE (SODIUM BROMIDE) [Concomitant]
  19. CATAPRES [Concomitant]
  20. GABAPEN (GABAPENTIN) [Concomitant]
  21. TANNALBIN (ALBUMIN TANNATE) [Concomitant]
  22. ERYTHROCIN W (ERYTHROMYCIN ETHYLSUCCINATE) [Concomitant]
  23. BIOFERMIN R (STREPTOCOCCUS FAECALIS) [Concomitant]
  24. ADSORBIN (ALUMINIUM SILICATE) [Concomitant]
  25. PULMICORT RESPULES (BUDESONIDE) INHALATION [Concomitant]
  26. COTRIM [Concomitant]

REACTIONS (3)
  - CARDIAC ARREST [None]
  - ILEUS PARALYTIC [None]
  - PANCREATITIS ACUTE [None]
